FAERS Safety Report 8334653-2 (Version None)
Quarter: 2012Q2

REPORT INFORMATION
  Report Type: 
  Country: None (occurrence: None)
  Receive Date: 20120503
  Receipt Date: 20110428
  Transmission Date: 20120825
  Serious: No
  Sender: FDA-Public Use
  Company Number: US-TEVA-2011002097

PATIENT
  Sex: Male
  Weight: 77.18 kg

DRUGS (3)
  1. TRAMADOL HCL [Concomitant]
     Dates: start: 20000101
  2. COPAXONE [Concomitant]
     Dates: start: 20000101
  3. NUVIGIL [Suspect]
     Indication: FATIGUE
     Dosage: 150 MILLIGRAM;
     Route: 048
     Dates: start: 20090101

REACTIONS (1)
  - INSOMNIA [None]
